FAERS Safety Report 15495219 (Version 1)
Quarter: 2018Q4

REPORT INFORMATION
  Report Type: Spontaneous
  Country: FR (occurrence: FR)
  Receive Date: 20181012
  Receipt Date: 20181012
  Transmission Date: 20190205
  Serious: Yes (Hospitalization)
  Sender: FDA-Public Use
  Company Number: PHHY2018FR121896

PATIENT

DRUGS (2)
  1. TRAMETINIB [Suspect]
     Active Substance: TRAMETINIB
     Indication: METASTATIC MALIGNANT MELANOMA
     Dosage: UNK
     Route: 065
  2. DABRAFENIB [Suspect]
     Active Substance: DABRAFENIB
     Indication: METASTATIC MALIGNANT MELANOMA
     Dosage: UNK
     Route: 065

REACTIONS (7)
  - Drug reaction with eosinophilia and systemic symptoms [Recovering/Resolving]
  - Acute kidney injury [Recovering/Resolving]
  - Hepatocellular injury [Unknown]
  - Proteinuria [Recovering/Resolving]
  - Face oedema [Recovering/Resolving]
  - Rash maculo-papular [Recovering/Resolving]
  - Oedema peripheral [Recovering/Resolving]
